FAERS Safety Report 19672985 (Version 2)
Quarter: 2021Q3

REPORT INFORMATION
  Report Type: Spontaneous
  Country: US (occurrence: US)
  Receive Date: 20210809
  Receipt Date: 20210914
  Transmission Date: 20211014
  Serious: No
  Sender: FDA-Public Use
  Company Number: US-UNITED THERAPEUTICS-UNT-2021-014905

PATIENT
  Sex: Female
  Weight: 104.31 kg

DRUGS (4)
  1. REMODULIN [Suspect]
     Active Substance: TREPROSTINIL
     Dosage: 0.028 ?G/KG, CONTINUING
     Route: 058
     Dates: start: 2021
  2. ADEMPAS [Concomitant]
     Active Substance: RIOCIGUAT
     Indication: PRODUCT USED FOR UNKNOWN INDICATION
     Dosage: UNK
     Route: 065
  3. REMODULIN [Suspect]
     Active Substance: TREPROSTINIL
     Indication: PULMONARY ARTERIAL HYPERTENSION
     Dosage: 0.021 ?G/KG, CONTINUING
     Route: 058
     Dates: start: 20210721
  4. AMBRISENTAN [Concomitant]
     Active Substance: AMBRISENTAN
     Indication: PRODUCT USED FOR UNKNOWN INDICATION
     Route: 065

REACTIONS (14)
  - Device maintenance issue [Unknown]
  - Infusion site discomfort [Unknown]
  - Infusion site pain [Unknown]
  - Infusion site warmth [Recovering/Resolving]
  - Infusion site erythema [Unknown]
  - Joint swelling [Unknown]
  - Fatigue [Unknown]
  - Dizziness [Recovered/Resolved]
  - Abdominal distension [Unknown]
  - Nausea [Unknown]
  - Infusion site haemorrhage [Unknown]
  - Dyspnoea exertional [Unknown]
  - Infusion site pruritus [Unknown]
  - Device difficult to use [Unknown]

NARRATIVE: CASE EVENT DATE: 2021
